FAERS Safety Report 18198042 (Version 2)
Quarter: 2020Q3

REPORT INFORMATION
  Report Type: Spontaneous
  Country: FR (occurrence: FR)
  Receive Date: 20200826
  Receipt Date: 20200903
  Transmission Date: 20201103
  Serious: Yes (Hospitalization)
  Sender: FDA-Public Use
  Company Number: FR-PFIZER INC-2020327454

PATIENT
  Age: 29 Year
  Sex: Female
  Weight: 78.5 kg

DRUGS (8)
  1. CORTANCYL [Interacting]
     Active Substance: PREDNISONE
     Indication: JUVENILE IDIOPATHIC ARTHRITIS
     Dosage: 10 MG, 1X/DAY
     Route: 048
     Dates: start: 1999, end: 20200623
  2. ROACTEMRA [Interacting]
     Active Substance: TOCILIZUMAB
     Indication: JUVENILE IDIOPATHIC ARTHRITIS
  3. ROACTEMRA [Interacting]
     Active Substance: TOCILIZUMAB
     Indication: JUVENILE IDIOPATHIC ARTHRITIS
     Dosage: 162 MG, WEEKLY
     Route: 058
     Dates: start: 20200513, end: 20200623
  4. SPECIAFOLDINE [Concomitant]
     Active Substance: FOLIC ACID
     Indication: VITAMIN SUPPLEMENTATION
     Dosage: 10 MG, WEEKLY
     Route: 048
     Dates: start: 201312
  5. METHOTREXATE SODIUM. [Suspect]
     Active Substance: METHOTREXATE SODIUM
     Indication: JUVENILE IDIOPATHIC ARTHRITIS
     Dosage: 15 MG, WEEKLY
     Route: 048
     Dates: start: 201312, end: 20200623
  6. CORTANCYL [Interacting]
     Active Substance: PREDNISONE
     Indication: JUVENILE IDIOPATHIC ARTHRITIS
  7. SPECIAFOLDINE [Concomitant]
     Active Substance: FOLIC ACID
     Indication: VITAMIN SUPPLEMENTATION
  8. FOLIC ACID. [Concomitant]
     Active Substance: FOLIC ACID
     Dosage: 10 MG, WEEKLY
     Route: 048

REACTIONS (4)
  - Product use in unapproved indication [Unknown]
  - Drug interaction [Recovered/Resolved]
  - Off label use [Unknown]
  - Septic shock [Recovered/Resolved]

NARRATIVE: CASE EVENT DATE: 201312
